FAERS Safety Report 5657326-3 (Version None)
Quarter: 2008Q1

REPORT INFORMATION
  Report Type: 
  Country: None (occurrence: None)
  Receive Date: 20080310
  Receipt Date: 20080303
  Transmission Date: 20080703
  Serious: Yes (Other)
  Sender: FDA-Public Use
  Company Number: US-PFIZER INC-2007047590

PATIENT
  Sex: Female

DRUGS (2)
  1. BEXTRA [Suspect]
     Indication: ARTHRITIS
  2. BEXTRA [Suspect]
     Indication: PAIN

REACTIONS (1)
  - MYOCARDIAL INFARCTION [None]
